FAERS Safety Report 15686304 (Version 2)
Quarter: 2018Q4

REPORT INFORMATION
  Report Type: Report from Study
  Country: HK (occurrence: HK)
  Receive Date: 20181204
  Receipt Date: 20181213
  Transmission Date: 20190205
  Serious: Yes (Death, Other)
  Sender: FDA-Public Use
  Company Number: PHHY2018HK173350

PATIENT
  Age: 48 Year
  Sex: Female

DRUGS (4)
  1. DABRAFENIB [Suspect]
     Active Substance: DABRAFENIB
     Indication: GLIOBLASTOMA MULTIFORME
     Dosage: 150 MG, BID
     Route: 048
     Dates: start: 20180611, end: 20180919
  2. MORPHINE [Concomitant]
     Active Substance: MORPHINE
     Indication: SUPPORTIVE CARE
     Dosage: 15 MG, QD
     Route: 065
     Dates: start: 20180920
  3. TRAMETINIB [Suspect]
     Active Substance: TRAMETINIB
     Indication: GLIOBLASTOMA MULTIFORME
     Dosage: 2 MG, QD
     Route: 048
     Dates: start: 20180611, end: 20180919
  4. VALPROATE [Concomitant]
     Active Substance: VALPROIC ACID
     Indication: SEIZURE
     Dosage: 200 MG, BID
     Route: 065
     Dates: start: 20180913, end: 20180920

REACTIONS (4)
  - Hydrocephalus [Fatal]
  - Malignant neoplasm progression [Fatal]
  - Glioblastoma multiforme [Fatal]
  - Neurological decompensation [Fatal]

NARRATIVE: CASE EVENT DATE: 201808
